FAERS Safety Report 12791728 (Version 1)
Quarter: 2016Q3

REPORT INFORMATION
  Report Type: Spontaneous
  Country: US (occurrence: US)
  Receive Date: 20160928
  Receipt Date: 20160928
  Transmission Date: 20161109
  Serious: Yes (Hospitalization, Other)
  Sender: FDA-Public Use
  Company Number: None

PATIENT
  Age: 0 Day
  Sex: Female
  Weight: 81 kg

DRUGS (2)
  1. NAPROXEN. [Concomitant]
     Active Substance: NAPROXEN
  2. DEPO-PROVERA [Suspect]
     Active Substance: MEDROXYPROGESTERONE ACETATE
     Indication: CONTRACEPTION
     Dosage: ?          QUANTITY:1 INJECTION(S);OTHER FREQUENCY:EVERY 13 WEEKS;?
     Route: 030
     Dates: start: 20140924, end: 20160624

REACTIONS (2)
  - Abdominal pain [None]
  - Menorrhagia [None]

NARRATIVE: CASE EVENT DATE: 20160923
